FAERS Safety Report 8602475-0 (Version None)
Quarter: 2012Q3

REPORT INFORMATION
  Report Type: 
  Country: None (occurrence: None)
  Receive Date: 20120817
  Receipt Date: 20120112
  Transmission Date: 20120928
  Serious: Yes (Other)
  Sender: FDA-Public Use
  Company Number: US-ROCHE-1100842

PATIENT
  Sex: Male

DRUGS (6)
  1. NITROGLYCERIN [Concomitant]
  2. HEPARIN [Concomitant]
  3. ASPIRIN [Concomitant]
  4. PROCARDIA [Concomitant]
  5. ACTIVASE [Suspect]
     Indication: ACUTE MYOCARDIAL INFARCTION
  6. LIDOCAINE [Concomitant]

REACTIONS (1)
  - CHEST PAIN [None]
